FAERS Safety Report 5051993-3 (Version None)
Quarter: 2006Q3

REPORT INFORMATION
  Report Type: 
  Country: None (occurrence: None)
  Receive Date: 20060711
  Receipt Date: 20060622
  Transmission Date: 20061208
  Serious: No
  Sender: FDA-Public Use
  Company Number: 432356

PATIENT
  Age: 14 Year
  Sex: Male
  Weight: 79.4 kg

DRUGS (4)
  1. ACCUTANE [Suspect]
     Indication: ACNE
     Dosage: 40 MG 2 PER 1 DAY ORAL
     Route: 048
     Dates: start: 19960106, end: 19970625
  2. ACETAMINOPHEN [Concomitant]
  3. GENERIC DRUGS (GENERIC DRUG NOS) [Concomitant]
  4. ANTIBIOTIC NOS (ANTIBIOTIC NOS) [Concomitant]

REACTIONS (94)
  - ABDOMINAL DISTENSION [None]
  - ABDOMINAL PAIN [None]
  - ABSCESS [None]
  - ABSCESS INTESTINAL [None]
  - ACNE [None]
  - ACTIVITIES OF DAILY LIVING IMPAIRED [None]
  - AGEUSIA [None]
  - ALLERGY TEST POSITIVE [None]
  - ANAEMIA [None]
  - ANOGENITAL WARTS [None]
  - ANOSMIA [None]
  - ARTHRALGIA [None]
  - ARTHROPOD BITE [None]
  - BIOPSY COLON ABNORMAL [None]
  - BLISTER [None]
  - BLOOD CHOLESTEROL INCREASED [None]
  - BONE DISORDER [None]
  - BRONCHITIS [None]
  - CALCINOSIS [None]
  - CELLULITIS [None]
  - COLITIS [None]
  - COLITIS ULCERATIVE [None]
  - CONDITION AGGRAVATED [None]
  - COXSACKIE VIRAL INFECTION [None]
  - CREPITATIONS [None]
  - CROHN'S DISEASE [None]
  - DEPRESSION [None]
  - DERMAL CYST [None]
  - DIARRHOEA [None]
  - DISCOMFORT [None]
  - DIZZINESS [None]
  - DUODENITIS [None]
  - DYSPLASTIC NAEVUS SYNDROME [None]
  - EPSTEIN-BARR VIRUS ANTIGEN POSITIVE [None]
  - EXOSTOSIS [None]
  - EYE DISORDER [None]
  - EYE MOVEMENT DISORDER [None]
  - FATIGUE [None]
  - FEAR OF DISEASE [None]
  - GASTROOESOPHAGEAL REFLUX DISEASE [None]
  - GROIN PAIN [None]
  - HAEMATEMESIS [None]
  - HAEMATOCHEZIA [None]
  - HEADACHE [None]
  - HYPERHIDROSIS [None]
  - HYPERKERATOSIS [None]
  - INFLAMMATORY BOWEL DISEASE [None]
  - INTERNATIONAL NORMALISED RATIO DECREASED [None]
  - INTESTINAL HAEMORRHAGE [None]
  - INTESTINAL OBSTRUCTION [None]
  - IRRITABLE BOWEL SYNDROME [None]
  - JOINT INJURY [None]
  - LACRIMATION INCREASED [None]
  - LIP DRY [None]
  - LOW DENSITY LIPOPROTEIN INCREASED [None]
  - MALAISE [None]
  - MALIGNANT MELANOMA [None]
  - MELANOCYTIC NAEVUS [None]
  - MICROCYTIC ANAEMIA [None]
  - MUSCLE INJURY [None]
  - MUSCULAR WEAKNESS [None]
  - NASAL CONGESTION [None]
  - NAUSEA [None]
  - NECK INJURY [None]
  - NECK PAIN [None]
  - OCULAR HYPERAEMIA [None]
  - ORAL INTAKE REDUCED [None]
  - PAIN [None]
  - PAIN IN EXTREMITY [None]
  - PHARYNGITIS [None]
  - POLLAKIURIA [None]
  - POLYP [None]
  - PRODUCTIVE COUGH [None]
  - PROSTATITIS [None]
  - PROTHROMBIN TIME PROLONGED [None]
  - PYREXIA [None]
  - RASH [None]
  - RASH PAPULAR [None]
  - RASH PUSTULAR [None]
  - RECTAL HAEMORRHAGE [None]
  - RECTAL TENESMUS [None]
  - RED CELL DISTRIBUTION WIDTH DECREASED [None]
  - REFLUX GASTRITIS [None]
  - RHINITIS ALLERGIC [None]
  - ROAD TRAFFIC ACCIDENT [None]
  - SCAR [None]
  - SKIN PAPILLOMA [None]
  - STRESS [None]
  - TENDERNESS [None]
  - TESTICULAR PAIN [None]
  - UPPER RESPIRATORY TRACT INFECTION [None]
  - VOMITING [None]
  - WHITE BLOOD CELLS STOOL [None]
  - XEROSIS [None]
